FAERS Safety Report 9938986 (Version 1)
Quarter: 2014Q1

REPORT INFORMATION
  Report Type: Report from Study
  Country: US (occurrence: US)
  Receive Date: 20140303
  Receipt Date: 20140303
  Transmission Date: 20141002
  Serious: No
  Sender: FDA-Public Use
  Company Number: US-ABBVIE-13P-163-1032208-00

PATIENT
  Age: 21 Year
  Sex: Female
  Weight: 55.84 kg

DRUGS (3)
  1. HUMIRA [Suspect]
     Indication: CROHN^S DISEASE
     Route: 058
     Dates: start: 20130104, end: 20130104
  2. DEXTROAMP AMPHET ER [Concomitant]
     Indication: ATTENTION DEFICIT/HYPERACTIVITY DISORDER
  3. DOXYCYCLINE [Concomitant]
     Indication: SKIN DISORDER

REACTIONS (5)
  - Feeling hot [Recovering/Resolving]
  - Injection site pain [Recovering/Resolving]
  - Injection site induration [Recovered/Resolved]
  - Injection site swelling [Not Recovered/Not Resolved]
  - Dizziness [Recovering/Resolving]
